FAERS Safety Report 4674111-X (Version None)
Quarter: 2005Q2

REPORT INFORMATION
  Report Type: 
  Country: None (occurrence: None)
  Receive Date: 20050524
  Receipt Date: 20050524
  Transmission Date: 20051028
  Serious: Yes (Death)
  Sender: FDA-Public Use
  Company Number: None

PATIENT
  Age: 47 Year
  Sex: Male
  Weight: 85.7298 kg

DRUGS (2)
  1. NALTREXONE [Suspect]
     Indication: DEPENDENCE
     Dosage: DAILY ORAL DAILY
     Route: 048
     Dates: start: 20040120, end: 20040617
  2. LOPRESSOR [Concomitant]

REACTIONS (3)
  - ANXIETY [None]
  - DEPENDENCE [None]
  - PANIC ATTACK [None]
